FAERS Safety Report 8673335 (Version 3)
Quarter: 2013Q1

REPORT INFORMATION
  Report Type: Spontaneous
  Country: US (occurrence: US)
  Receive Date: 20120719
  Receipt Date: 20120918
  Transmission Date: 20140127
  Serious: Yes (Other)
  Sender: FDA-Public Use
  Company Number: PHEH2012US013913

PATIENT
  Age: 82 Year
  Sex: Female

DRUGS (3)
  1. ZOMETA (ZOLEDRONATE) [Suspect]
  2. REVLIMID  (LENALIDOMIDE) [Suspect]
     Indication: PLASMA CELL MYELOMA
     Dosage: 25 MG, DAILY
     Route: 048
     Dates: start: 20100607, end: 201007
  3. ARANESP (DARBEPOETIN ALFA) [Concomitant]
     Dosage: 10 MG, DAILY
     Route: 048
     Dates: start: 201007, end: 201010

REACTIONS (6)
  - Osteonecrosis of jaw [Unknown]
  - Gingival pain [Unknown]
  - Oral pain [Unknown]
  - Toothache [Unknown]
  - Exposed bone in jaw [Unknown]
  - Fatigue [Unknown]
